FAERS Safety Report 26042710 (Version 1)
Quarter: 2025Q4

REPORT INFORMATION
  Report Type: Spontaneous
  Country: US (occurrence: US)
  Receive Date: 20251113
  Receipt Date: 20251113
  Transmission Date: 20260118
  Serious: No
  Sender: MERCK SHARP & DOHME LLC
  Company Number: US-009507513-2342214

PATIENT
  Sex: Female
  Weight: 107.5 kg

DRUGS (20)
  1. SOTATERCEPT [Suspect]
     Active Substance: SOTATERCEPT
     Indication: Product used for unknown indication
  2. SOTATERCEPT [Suspect]
     Active Substance: SOTATERCEPT
  3. SOTATERCEPT [Suspect]
     Active Substance: SOTATERCEPT
  4. SOTATERCEPT [Suspect]
     Active Substance: SOTATERCEPT
  5. VITAMIN C [Concomitant]
     Active Substance: ASCORBIC ACID
  6. Omega [Concomitant]
  7. TRAZODONE HCL [Concomitant]
     Active Substance: TRAZODONE HYDROCHLORIDE
  8. DRY EYES [Concomitant]
     Active Substance: MINERAL OIL\PETROLATUM
  9. TYLENOL ARTHRITIS PAIN [Concomitant]
     Active Substance: ACETAMINOPHEN
  10. LIPITOR [Concomitant]
     Active Substance: ATORVASTATIN CALCIUM
  11. ALENDRONATE SODIUM [Concomitant]
     Active Substance: ALENDRONATE SODIUM
  12. TADALAFIL [Concomitant]
     Active Substance: TADALAFIL
  13. CALCIUM [Concomitant]
     Active Substance: CALCIUM
  14. POTASSIUM CITRATE [Concomitant]
     Active Substance: POTASSIUM CITRATE
  15. IRON\VITAMINS [Concomitant]
     Active Substance: IRON\VITAMINS
  16. FUROSEMIDE [Concomitant]
     Active Substance: FUROSEMIDE
  17. AMBRISENTAN [Concomitant]
     Active Substance: AMBRISENTAN
  18. OMEPRAZOLE [Concomitant]
     Active Substance: OMEPRAZOLE
  19. AMLODIPINE BESYLATE [Concomitant]
     Active Substance: AMLODIPINE BESYLATE
  20. TREPROSTINIL SODIUM [Suspect]
     Active Substance: TREPROSTINIL SODIUM
     Indication: Pulmonary arterial hypertension
     Dosage: 72 UG (12 BREATHS), 4 TIMES A DAY (QID); CONCENTRATION: 0.6 MG/ML
     Route: 055
     Dates: start: 20161025

REACTIONS (1)
  - Drug ineffective [Unknown]
